FAERS Safety Report 20189514 (Version 1)
Quarter: 2021Q4

REPORT INFORMATION
  Report Type: Spontaneous
  Country: IT (occurrence: IT)
  Receive Date: 20211215
  Receipt Date: 20211215
  Transmission Date: 20220303
  Serious: Yes (Hospitalization, Other)
  Sender: FDA-Public Use
  Company Number: IT-DSJP-DSE-2021-141142

PATIENT
  Age: 90 Year
  Sex: Female

DRUGS (1)
  1. EDOXABAN [Suspect]
     Active Substance: EDOXABAN
     Indication: Atrial fibrillation
     Dosage: 30 MG, QD

REACTIONS (4)
  - Haemorrhage [Unknown]
  - Acute kidney injury [Unknown]
  - Nephrotic syndrome [Unknown]
  - Mass [Unknown]
